FAERS Safety Report 7033685-4 (Version None)
Quarter: 2010Q4

REPORT INFORMATION
  Report Type: 
  Country: None (occurrence: None)
  Receive Date: 20101007
  Receipt Date: 20101001
  Transmission Date: 20110411
  Serious: Yes (Hospitalization, Disabling, Other)
  Sender: FDA-Public Use
  Company Number: GB-GENZYME-THYM-1001833

PATIENT
  Sex: Male

DRUGS (15)
  1. THYMOGLOBULIN [Suspect]
     Indication: APLASTIC ANAEMIA
     Dosage: 323.6 MG, QD
     Route: 042
     Dates: start: 20100819, end: 20100824
  2. CYCLOSPORINE [Suspect]
     Indication: PROPHYLAXIS AGAINST GRAFT VERSUS HOST DISEASE
     Dosage: 100 MG, QD
     Route: 048
     Dates: start: 20100819, end: 20100925
  3. HYDROCORTISONE [Concomitant]
     Indication: PRODUCT USED FOR UNKNOWN INDICATION
     Dosage: 100 MG, UNK
     Route: 042
     Dates: start: 20100902, end: 20100902
  4. OMEPRAZOLE [Concomitant]
     Indication: GASTROOESOPHAGEAL REFLUX DISEASE
     Dosage: 20 MG, QD
     Route: 048
     Dates: start: 20100826, end: 20100903
  5. ITRACONAZOLE [Concomitant]
     Indication: ASPERGILLOSIS
     Dosage: 200 MG, QD
     Route: 042
     Dates: start: 20100811, end: 20100902
  6. ACYCLOVIR [Concomitant]
     Indication: HERPES VIRUS INFECTION
     Dosage: 200 MG, QD
     Route: 048
     Dates: start: 20100811, end: 20100902
  7. NEOMYCIN [Concomitant]
     Indication: PRODUCT USED FOR UNKNOWN INDICATION
     Dosage: 500 MG, QD
     Route: 048
     Dates: start: 20100818, end: 20100902
  8. COLISTIN SULFATE [Concomitant]
     Indication: PRODUCT USED FOR UNKNOWN INDICATION
     Dosage: 1.5 ML, QD
     Route: 048
     Dates: start: 20100818, end: 20100902
  9. CHLORPHENIRAMINE MALEATE [Concomitant]
     Indication: PRODUCT USED FOR UNKNOWN INDICATION
     Dosage: 8 MG, UNK
     Route: 042
     Dates: start: 20100818, end: 20100823
  10. METHYLPREDNISOLONE [Concomitant]
     Indication: PRODUCT USED FOR UNKNOWN INDICATION
     Dosage: 80 MG, QD
     Route: 042
     Dates: start: 20100819, end: 20100824
  11. TAZOCIN [Concomitant]
     Indication: ANTIBIOTIC THERAPY
     Route: 065
  12. METRONIDAZOLE [Concomitant]
     Indication: ANTIBIOTIC THERAPY
     Route: 065
  13. AMIKACIN [Concomitant]
     Indication: ANTIBIOTIC THERAPY
     Route: 065
  14. TEICOPLANIN [Concomitant]
     Indication: ANTIBIOTIC THERAPY
     Route: 065
  15. AMBISOME [Concomitant]
     Indication: ANTIBIOTIC THERAPY
     Route: 065

REACTIONS (6)
  - BACTERAEMIA [None]
  - CONVULSION [None]
  - FALL [None]
  - NEUTROPENIC SEPSIS [None]
  - PLEURAL EFFUSION [None]
  - REVERSIBLE POSTERIOR LEUKOENCEPHALOPATHY SYNDROME [None]
